FAERS Safety Report 12686805 (Version 6)
Quarter: 2018Q1

REPORT INFORMATION
  Report Type: Spontaneous
  Country: US (occurrence: US)
  Receive Date: 20160825
  Receipt Date: 20180323
  Transmission Date: 20180508
  Serious: Yes (Hospitalization)
  Sender: FDA-Public Use
  Company Number: US-BIOGEN-2016BI00247002

PATIENT
  Sex: Male

DRUGS (4)
  1. AVONEX [Suspect]
     Active Substance: INTERFERON BETA-1A
     Route: 030
     Dates: start: 20140201
  2. AVONEX [Suspect]
     Active Substance: INTERFERON BETA-1A
     Route: 030
     Dates: start: 20140801
  3. AVONEX [Suspect]
     Active Substance: INTERFERON BETA-1A
     Indication: MULTIPLE SCLEROSIS
     Route: 030
  4. LEVOTHYROXIN [Concomitant]
     Active Substance: LEVOTHYROXINE
     Indication: PRODUCT USED FOR UNKNOWN INDICATION
     Route: 065

REACTIONS (12)
  - Coma [Unknown]
  - Incorrect route of drug administration [Unknown]
  - Road traffic accident [Recovered/Resolved]
  - Post-traumatic stress disorder [Unknown]
  - Cognitive disorder [Not Recovered/Not Resolved]
  - Urinary incontinence [Unknown]
  - Drug interaction [Unknown]
  - Mental disorder [Recovered/Resolved]
  - Loss of control of legs [Unknown]
  - Craniocerebral injury [Not Recovered/Not Resolved]
  - Bipolar disorder [Unknown]
  - Gait inability [Unknown]

NARRATIVE: CASE EVENT DATE: 2009
